FAERS Safety Report 12790989 (Version 3)
Quarter: 2016Q4

REPORT INFORMATION
  Report Type: Spontaneous
  Country: US (occurrence: US)
  Receive Date: 20160929
  Receipt Date: 20161004
  Transmission Date: 20170207
  Serious: No
  Sender: FDA-Public Use
  Company Number: US-PFIZER INC-2016450940

PATIENT
  Age: 5 Decade
  Sex: Female
  Weight: 99.34 kg

DRUGS (3)
  1. ZOLOFT [Suspect]
     Active Substance: SERTRALINE HYDROCHLORIDE
     Dosage: UNK UNK, WEEKLY (1/2 OF A 25MG TABLET ONCE A WEEK)
  2. SERTRALINE HCL [Suspect]
     Active Substance: SERTRALINE HYDROCHLORIDE
  3. METOPROLOL. [Concomitant]
     Active Substance: METOPROLOL
     Indication: PALPITATIONS
     Dosage: 50 MG, 1X/DAY

REACTIONS (2)
  - Intentional product misuse [Not Recovered/Not Resolved]
  - Paraesthesia [Unknown]
